FAERS Safety Report 17065198 (Version 2)
Quarter: 2020Q1

REPORT INFORMATION
  Report Type: Spontaneous
  Country: PT (occurrence: PT)
  Receive Date: 20191122
  Receipt Date: 20200131
  Transmission Date: 20200409
  Serious: Yes (Other)
  Sender: FDA-Public Use
  Company Number: PT-MYLANLABS-2019M1090466

PATIENT
  Age: 58 Year
  Sex: Male

DRUGS (2)
  1. MIRTAZAPINE. [Suspect]
     Active Substance: MIRTAZAPINE
     Indication: ADJUSTMENT DISORDER WITH ANXIETY
     Dosage: 30 MILLIGRAM, QD
     Route: 065
  2. MIRTAZAPINE. [Suspect]
     Active Substance: MIRTAZAPINE
     Indication: ADJUSTMENT DISORDER WITH DEPRESSED MOOD
     Dosage: 30 MG, QD

REACTIONS (8)
  - Logorrhoea [Recovered/Resolved]
  - Dysphoria [Recovered/Resolved]
  - Tachyphrenia [Recovered/Resolved]
  - Behaviour disorder [Recovered/Resolved]
  - Mania [Recovered/Resolved]
  - Insomnia [Recovered/Resolved]
  - Psychomotor hyperactivity [Recovered/Resolved]
  - Persecutory delusion [Recovered/Resolved]
